FAERS Safety Report 4492953-0 (Version None)
Quarter: 2004Q4

REPORT INFORMATION
  Report Type: 
  Country: None (occurrence: None)
  Receive Date: 20041102
  Receipt Date: 20040827
  Transmission Date: 20050328
  Serious: Yes (Death, Life-Threatening, Hospitalization, Disabling)
  Sender: FDA-Public Use
  Company Number: 8740

PATIENT
  Age: 76 Year
  Sex: Female

DRUGS (7)
  1. METHOTREXATE [Suspect]
     Indication: RHEUMATOID ARTHRITIS
     Dosage: 7.5  MG WEEKLY, PO
     Route: 048
     Dates: start: 20040414, end: 20040803
  2. INFLIXIMAB [Suspect]
     Indication: RHEUMATOID ARTHRITIS
     Dosage: 173 MG PER_CYCLE IV
     Route: 042
     Dates: start: 20040603, end: 20040715
  3. TRAMADOL [Concomitant]
  4. ROFECOXIB [Concomitant]
  5. QUININE [Concomitant]
  6. ACETAMINOPHEN [Concomitant]
  7. IRON SULPHATE [Concomitant]

REACTIONS (13)
  - ABDOMINAL PAIN [None]
  - ANAEMIA [None]
  - BLOOD UREA ABNORMAL [None]
  - DIARRHOEA [None]
  - GASTROINTESTINAL DISORDER [None]
  - IMMUNOSUPPRESSION [None]
  - LIVER FUNCTION TEST ABNORMAL [None]
  - METABOLIC ACIDOSIS [None]
  - PNEUMOCYSTIS CARINII PNEUMONIA [None]
  - RENAL FAILURE [None]
  - RESPIRATORY FAILURE [None]
  - TROPONIN I INCREASED [None]
  - VOMITING [None]
